FAERS Safety Report 15861841 (Version 1)
Quarter: 2019Q1

REPORT INFORMATION
  Report Type: Spontaneous
  Country: US (occurrence: US)
  Receive Date: 20190124
  Receipt Date: 20190124
  Transmission Date: 20190417
  Serious: No
  Sender: FDA-Public Use
  Company Number: US-BIOGEN-2019BI00685479

PATIENT
  Sex: Male
  Weight: 2.83 kg

DRUGS (2)
  1. TECFIDERA [Suspect]
     Active Substance: DIMETHYL FUMARATE
     Dosage: MAINTENANCE DOSE
     Route: 064
     Dates: start: 20171025, end: 20171130
  2. TECFIDERA [Suspect]
     Active Substance: DIMETHYL FUMARATE
     Indication: MATERNAL EXPOSURE TIMING UNSPECIFIED
     Dosage: STARTING DOSE
     Route: 064
     Dates: start: 20171018, end: 20171024

REACTIONS (3)
  - Foetal exposure during pregnancy [Recovered/Resolved]
  - Kidney enlargement [Not Recovered/Not Resolved]
  - Oedematous kidney [Not Recovered/Not Resolved]
